FAERS Safety Report 12431309 (Version 1)
Quarter: 2016Q2

REPORT INFORMATION
  Report Type: Spontaneous
  Country: US (occurrence: US)
  Receive Date: 20160603
  Receipt Date: 20160603
  Transmission Date: 20160815
  Serious: No
  Sender: FDA-Public Use
  Company Number: US-009507513-1605USA011585

PATIENT
  Sex: Female
  Weight: 63.95 kg

DRUGS (1)
  1. NEXPLANON [Suspect]
     Active Substance: ETONOGESTREL
     Dosage: 1 STANDARD PACKAGE FOR PREFLAPP OF 1
     Route: 059
     Dates: start: 20140807

REACTIONS (3)
  - No adverse event [Unknown]
  - Device breakage [Unknown]
  - Product quality issue [Unknown]
